FAERS Safety Report 6240668-0 (Version None)
Quarter: 2009Q2

REPORT INFORMATION
  Report Type: 
  Country: None (occurrence: None)
  Receive Date: 20090623
  Receipt Date: 20081218
  Transmission Date: 20091009
  Serious: No
  Sender: FDA-Public Use
  Company Number: US-ASTRAZENECA-2008UW28410

PATIENT
  Age: 53 Year
  Sex: Female
  Weight: 103 kg

DRUGS (6)
  1. PULMICORT FLEXHALER [Suspect]
     Indication: BRONCHITIS
     Dosage: 180 UG
     Route: 055
  2. METOPROLOL SUCCINATE [Concomitant]
  3. VITAMINS [Concomitant]
  4. ELAVIL [Concomitant]
  5. PREVACID [Concomitant]
  6. CEFUROXIME [Concomitant]

REACTIONS (2)
  - ILL-DEFINED DISORDER [None]
  - INSOMNIA [None]
